FAERS Safety Report 23689839 (Version 1)
Quarter: 2024Q1

REPORT INFORMATION
  Report Type: Report from Study
  Country: US (occurrence: US)
  Receive Date: 20240331
  Receipt Date: 20240331
  Transmission Date: 20240409
  Serious: Yes (Life-Threatening, Hospitalization)
  Sender: FDA-Public Use
  Company Number: US-002147023-NVSC2024US068363

PATIENT
  Age: 54 Year
  Sex: Female

DRUGS (1)
  1. ENTRESTO [Suspect]
     Active Substance: SACUBITRIL\VALSARTAN
     Indication: Product used for unknown indication
     Dosage: UNK, BID (49/51 MG)
     Route: 065
     Dates: start: 202401

REACTIONS (4)
  - Acute respiratory distress syndrome [Unknown]
  - Pneumonia [Unknown]
  - Sepsis [Unknown]
  - Fluid retention [Unknown]

NARRATIVE: CASE EVENT DATE: 20240114
